FAERS Safety Report 7146738-7 (Version None)
Quarter: 2010Q4

REPORT INFORMATION
  Report Type: 
  Country: None (occurrence: None)
  Receive Date: 20101208
  Receipt Date: 20101122
  Transmission Date: 20110411
  Serious: Yes (Other)
  Sender: FDA-Public Use
  Company Number: FR-AMGEN-US424417

PATIENT

DRUGS (2)
  1. ENBREL [Suspect]
     Indication: RHEUMATOID ARTHRITIS
     Dosage: UNK UNK, UNK
     Route: 058
     Dates: start: 20100401
  2. ENBREL [Suspect]
     Route: 058
     Dates: start: 20100401

REACTIONS (6)
  - AFFECTIVE DISORDER [None]
  - CONDITION AGGRAVATED [None]
  - DRUG INEFFECTIVE [None]
  - NASOPHARYNGITIS [None]
  - RHEUMATOID ARTHRITIS [None]
  - THYROID DISORDER [None]
